FAERS Safety Report 4521155-4 (Version None)
Quarter: 2004Q4

REPORT INFORMATION
  Report Type: 
  Country: None (occurrence: None)
  Receive Date: 20041208
  Receipt Date: 20031121
  Transmission Date: 20050328
  Serious: Yes (Other)
  Sender: FDA-Public Use
  Company Number: US-MERCK-0311USA02526

PATIENT
  Age: 61 Year
  Sex: Female
  Weight: 65 kg

DRUGS (25)
  1. SULFAMETHOXAZOLE AND TRIMETHOPRIM [Concomitant]
     Indication: URINARY TRACT INFECTION
     Route: 065
  2. SERZONE [Concomitant]
     Indication: DEPRESSION
     Route: 065
     Dates: start: 20010131, end: 20020101
  3. VERAPAMIL MSD LP [Concomitant]
     Route: 065
     Dates: start: 20010101
  4. ALBUTEROL [Concomitant]
     Indication: ASTHMA
     Route: 065
  5. ZYRTEC [Concomitant]
     Indication: HYPERSENSITIVITY
     Route: 065
  6. PREDNISONE [Concomitant]
     Indication: HYPERSENSITIVITY
     Route: 065
  7. CEPHALEXIN [Concomitant]
     Indication: ANTIBACTERIAL PROPHYLAXIS
     Route: 065
  8. AUGMENTIN '125' [Concomitant]
     Indication: ANTIBACTERIAL PROPHYLAXIS
     Route: 065
  9. ALLEGRA [Concomitant]
     Indication: HYPERSENSITIVITY
     Route: 065
  10. FLONASE [Concomitant]
     Indication: HYPERSENSITIVITY
     Route: 065
  11. PROMETHAZINE [Concomitant]
     Indication: HYPERSENSITIVITY
     Route: 065
  12. CYANOCOBALAMIN [Concomitant]
     Indication: ANAEMIA
     Route: 065
  13. REMERON [Concomitant]
     Indication: DEPRESSION
     Route: 065
  14. ACIPHEX [Concomitant]
     Indication: GASTROOESOPHAGEAL REFLUX DISEASE
     Route: 065
  15. TEQUIN [Concomitant]
     Indication: ANTIBACTERIAL PROPHYLAXIS
     Route: 065
  16. VIOXX [Suspect]
     Indication: ARTHRITIS
     Route: 048
     Dates: start: 20010131, end: 20011110
  17. VIOXX [Suspect]
     Indication: PAIN
     Route: 048
     Dates: start: 20010131, end: 20011110
  18. PREVACID [Concomitant]
     Indication: GASTROOESOPHAGEAL REFLUX DISEASE
     Route: 065
  19. METHYLPREDNISOLONE [Concomitant]
     Indication: INFLAMMATION
     Route: 065
  20. ESTRADIOL [Concomitant]
     Indication: HORMONE REPLACEMENT THERAPY
     Route: 065
     Dates: start: 20010101, end: 20020101
  21. CLONAZEPAM [Concomitant]
     Indication: CONVULSION PROPHYLAXIS
     Route: 065
  22. PROMETRIUM [Concomitant]
     Indication: HORMONE REPLACEMENT THERAPY
     Route: 065
     Dates: start: 20010101, end: 20020101
  23. VANTIN [Concomitant]
     Indication: ANTIBACTERIAL PROPHYLAXIS
     Route: 065
  24. MECLIZINE [Concomitant]
     Indication: MOTION SICKNESS
     Route: 065
  25. ACETAMINOPHEN AND HYDROCODONE BITARTRATE [Concomitant]
     Indication: ANALGESIC EFFECT
     Route: 065
     Dates: start: 20010101, end: 20010101

REACTIONS (8)
  - ANXIETY [None]
  - CARDIAC DISORDER [None]
  - DEPRESSION [None]
  - DYSPEPSIA [None]
  - GASTROOESOPHAGEAL REFLUX DISEASE [None]
  - MYOCARDIAL INFARCTION [None]
  - PAIN [None]
  - PANIC ATTACK [None]
